FAERS Safety Report 24985245 (Version 1)
Quarter: 2025Q1

REPORT INFORMATION
  Report Type: Spontaneous
  Country: GB (occurrence: GB)
  Receive Date: 20250219
  Receipt Date: 20250219
  Transmission Date: 20250408
  Serious: Yes (Hospitalization, Other)
  Sender: BAYER HEALTHCARE PHARMACEUTICALS INC.
  Company Number: GB-ROCHE-10000193558

PATIENT
  Age: 47 Year
  Sex: Male

DRUGS (3)
  1. CIPROFLOXACIN [Suspect]
     Active Substance: CIPROFLOXACIN
     Indication: Pouchitis
  2. ISOTRETINOIN [Suspect]
     Active Substance: ISOTRETINOIN
     Indication: Acne
     Dates: start: 1994, end: 1996
  3. TADALAFIL [Concomitant]
     Active Substance: TADALAFIL
     Indication: Erectile dysfunction
     Dates: start: 2010

REACTIONS (9)
  - Colitis ulcerative [Unknown]
  - Gastrointestinal disorder [Unknown]
  - Stoma complication [Unknown]
  - IgA nephropathy [Unknown]
  - Pain [Unknown]
  - Emotional distress [Unknown]
  - Gout [Unknown]
  - Pouchitis [Unknown]
  - Myalgia [Unknown]

NARRATIVE: CASE EVENT DATE: 19960101
